FAERS Safety Report 7292091-8 (Version None)
Quarter: 2011Q1

REPORT INFORMATION
  Report Type: 
  Country: None (occurrence: None)
  Receive Date: 20110215
  Receipt Date: 20110201
  Transmission Date: 20110831
  Serious: No
  Sender: FDA-Public Use
  Company Number: US-BIOGENIDEC-2011BI002216

PATIENT
  Age: 38 Year
  Sex: Female

DRUGS (4)
  1. TYSABRI [Suspect]
     Indication: MULTIPLE SCLEROSIS
     Route: 042
     Dates: start: 20090612, end: 20100318
  2. TYSABRI [Suspect]
     Route: 042
     Dates: start: 20100928
  3. AVONEX [Concomitant]
     Indication: MULTIPLE SCLEROSIS
     Route: 030
     Dates: start: 20060206
  4. AVONEX [Concomitant]
     Route: 030
     Dates: start: 20081110

REACTIONS (7)
  - HYPERSENSITIVITY [None]
  - SCAR [None]
  - URTICARIA [None]
  - DYSPNOEA [None]
  - FATIGUE [None]
  - PHARYNGEAL OEDEMA [None]
  - PRURITUS [None]
